FAERS Safety Report 8121759-6 (Version None)
Quarter: 2012Q1

REPORT INFORMATION
  Report Type: 
  Country: None (occurrence: None)
  Receive Date: 20120207
  Receipt Date: 20120207
  Transmission Date: 20120608
  Serious: Yes (Hospitalization, Disabling)
  Sender: FDA-Public Use
  Company Number: None

PATIENT
  Sex: Male
  Weight: 68.0396 kg

DRUGS (2)
  1. ABILIFY [Suspect]
     Indication: BIPOLAR DISORDER
     Dosage: 5 MG - 10 MG - 15 1 OR 2X A DAY
     Dates: start: 20100425, end: 20101001
  2. ABILIFY [Suspect]
     Indication: ANXIETY
     Dosage: 5 MG - 10 MG - 15 1 OR 2X A DAY
     Dates: start: 20100425, end: 20101001

REACTIONS (1)
  - TORTICOLLIS [None]
